FAERS Safety Report 6160079-6 (Version None)
Quarter: 2009Q2

REPORT INFORMATION
  Report Type: 
  Country: None (occurrence: None)
  Receive Date: 20090416
  Receipt Date: 20090406
  Transmission Date: 20091009
  Serious: Yes (Other)
  Sender: FDA-Public Use
  Company Number: 8044599

PATIENT
  Age: 9 Year
  Sex: Female
  Weight: 44 kg

DRUGS (7)
  1. KEPPRA [Suspect]
     Indication: CONVULSION
     Dosage: 1000 MG 2/D ITC
     Dates: start: 20000101
  2. KEPPRA XR [Suspect]
     Indication: CONVULSION
     Dosage: 500 MG/D ITC
     Dates: start: 20090404, end: 20090404
  3. ZONEGRAN [Concomitant]
  4. LAMICTAL [Concomitant]
  5. MIRALAX [Concomitant]
  6. MILK OF MAGNESIUM [Concomitant]
  7. ZEGERID [Concomitant]

REACTIONS (7)
  - CONDITION AGGRAVATED [None]
  - CONVULSION [None]
  - DEVICE OCCLUSION [None]
  - DRUG INEFFECTIVE [None]
  - FEEDING TUBE COMPLICATION [None]
  - MEDICATION ERROR [None]
  - THERAPEUTIC RESPONSE UNEXPECTED WITH DRUG SUBSTITUTION [None]
